FAERS Safety Report 7073151 (Version 4)
Quarter: 2014Q3

REPORT INFORMATION
  Report Type: Report from Study
  Country: JP (occurrence: JP)
  Receive Date: 20090805
  Receipt Date: 20140904
  Transmission Date: 20150326
  Serious: Yes (Hospitalization, Other)
  Sender: FDA-Public Use
  Company Number: PHHY2009JP30850

PATIENT
  Age: 79 Year
  Sex: Male

DRUGS (9)
  1. AMN107 [Interacting]
     Active Substance: NILOTINIB
     Dosage: 400 MG, DAILY
     Route: 048
     Dates: start: 20090803, end: 20090818
  2. AMN107 [Interacting]
     Active Substance: NILOTINIB
     Dosage: UNK
     Route: 048
     Dates: start: 20090901
  3. AMN107 [Interacting]
     Active Substance: NILOTINIB
     Dosage: 200 MG, DAILY
     Route: 048
     Dates: start: 20090819, end: 20090826
  4. AMN107 [Suspect]
     Active Substance: NILOTINIB
     Indication: CHRONIC MYELOID LEUKAEMIA
     Dosage: 800 MG, DAILY
     Route: 048
     Dates: start: 20090708, end: 20090721
  5. AMN107 [Interacting]
     Active Substance: NILOTINIB
     Dosage: 100 MG, DAILY
     Route: 048
     Dates: start: 20090831
  6. CLARITH [Interacting]
     Active Substance: CLARITHROMYCIN
     Dosage: 400 MG, DAILY
     Route: 048
     Dates: start: 20090718, end: 20090722
  7. RIZE [Concomitant]
     Active Substance: CLOTIAZEPAM
     Dosage: 5 MG
     Route: 048
     Dates: start: 20070620
  8. HERBESSOR R [Concomitant]
     Indication: HYPERTENSION
     Dosage: 100 MG
     Route: 048
     Dates: start: 20070620
  9. GASTER [Concomitant]
     Active Substance: FAMOTIDINE
     Dosage: 20 MG
     Route: 048
     Dates: start: 20070815

REACTIONS (13)
  - Renal disorder [Recovered/Resolved]
  - Drug level increased [Unknown]
  - C-reactive protein increased [Recovering/Resolving]
  - Pyrexia [Recovered/Resolved]
  - Blood potassium decreased [Not Recovered/Not Resolved]
  - Liver disorder [Recovered/Resolved]
  - Drug interaction [Unknown]
  - Lymphocyte count decreased [Not Recovered/Not Resolved]
  - Platelet count decreased [Recovering/Resolving]
  - Pleural effusion [Recovered/Resolved]
  - Red blood cell count decreased [Recovering/Resolving]
  - Haematocrit decreased [Not Recovered/Not Resolved]
  - Haemoglobin decreased [Not Recovered/Not Resolved]

NARRATIVE: CASE EVENT DATE: 20090718
